FAERS Safety Report 8136560 (Version 2)
Quarter: 2013Q1

REPORT INFORMATION
  Report Type: Spontaneous
  Country: LB (occurrence: LB)
  Receive Date: 20110914
  Receipt Date: 20130301
  Transmission Date: 20140127
  Serious: Yes (Death)
  Sender: FDA-Public Use
  Company Number: LB-CELGENEUS-093-20785-11090605

PATIENT
  Age: 72 Year
  Sex: Male

DRUGS (3)
  1. THALIDOMIDE [Suspect]
     Indication: PLASMA CELL MYELOMA
     Dosage: 200 MILLIGRAM
     Route: 048
     Dates: start: 200805, end: 201104
  2. DEXAMETHASONE [Concomitant]
     Indication: PLASMA CELL MYELOMA
     Route: 065
  3. ALKERAN [Concomitant]
     Indication: PLASMA CELL MYELOMA
     Route: 065

REACTIONS (1)
  - Acute myeloid leukaemia [Fatal]
